FAERS Safety Report 7830618-5 (Version None)
Quarter: 2011Q4

REPORT INFORMATION
  Report Type: 
  Country: None (occurrence: None)
  Receive Date: 20111021
  Receipt Date: 20111013
  Transmission Date: 20120403
  Serious: Yes (Other)
  Sender: FDA-Public Use
  Company Number: GB-UCBSA-043386

PATIENT
  Age: 66 Year
  Sex: Female

DRUGS (4)
  1. PRIADEL MR [Concomitant]
     Indication: SCHIZOPHRENIA
     Route: 048
  2. ACETAMINOPHEN AND CODEINE PHOSPHATE [Suspect]
     Indication: PAIN
     Dosage: 30/500; MAX 4 TIMES DAILY
     Route: 048
  3. ALBUTEROL [Concomitant]
     Indication: ASTHMA
     Dosage: 2 PUFFS; 2DF- 1DAY (DOSAGES/INTERVAL)
     Route: 055
  4. CLOZAPINE [Suspect]
     Dosage: 100MG MANE+200MGNOCTE
     Route: 048
     Dates: start: 20090626

REACTIONS (9)
  - MALAISE [None]
  - BLOOD BILIRUBIN INCREASED [None]
  - BLOOD CHOLESTEROL INCREASED [None]
  - GAMMA-GLUTAMYLTRANSFERASE INCREASED [None]
  - INFECTION [None]
  - BACK PAIN [None]
  - BLOOD ALKALINE PHOSPHATASE INCREASED [None]
  - ASPARTATE AMINOTRANSFERASE INCREASED [None]
  - BLOOD CALCIUM INCREASED [None]
